FAERS Safety Report 7292813-6 (Version None)
Quarter: 2011Q1

REPORT INFORMATION
  Report Type: 
  Country: None (occurrence: None)
  Receive Date: 20110210
  Receipt Date: 20110210
  Transmission Date: 20110831
  Serious: Yes (Disabling)
  Sender: FDA-Public Use
  Company Number: None

PATIENT
  Sex: Female
  Weight: 86.1834 kg

DRUGS (1)
  1. TORSEMIDE NDC # 31722-0531-01 20MG [Suspect]
     Indication: DIURETIC THERAPY
     Dosage: 20MG 1 PER DAY PO
     Route: 048
     Dates: start: 20101101, end: 20110201

REACTIONS (5)
  - DISCOMFORT [None]
  - RASH PRURITIC [None]
  - RASH GENERALISED [None]
  - BLOOD POTASSIUM DECREASED [None]
  - PRODUCT SUBSTITUTION ISSUE [None]
